FAERS Safety Report 15458532 (Version 1)
Quarter: 2018Q3

REPORT INFORMATION
  Report Type: Spontaneous
  Country: TR (occurrence: TR)
  Receive Date: 20180930
  Receipt Date: 20180930
  Transmission Date: 20181020
  Serious: Yes (Other)
  Sender: FDA-Public Use
  Company Number: None

PATIENT
  Age: 68 Year
  Sex: Female

DRUGS (2)
  1. SERAQUEL, 25MG DAILY [Concomitant]
  2. FEMARA [Suspect]
     Active Substance: LETROZOLE
     Indication: NEOPLASM MALIGNANT
     Route: 048
     Dates: start: 20180713, end: 20180912

REACTIONS (3)
  - Balance disorder [None]
  - Swelling [None]
  - Hyperaesthesia [None]

NARRATIVE: CASE EVENT DATE: 20180815
